FAERS Safety Report 16055822 (Version 1)
Quarter: 2019Q2

REPORT INFORMATION
  Report Type: Spontaneous
  Country: US (occurrence: US)
  Receive Date: 20190308
  Receipt Date: 20190308
  Transmission Date: 20190711
  Serious: Yes (Other)
  Sender: FDA-Public Use
  Company Number: None

PATIENT
  Age: 29 Year
  Sex: Female
  Weight: 65.25 kg

DRUGS (1)
  1. OLAY TOTAL EFFECTS ANTI-AGING MOISTURIZER BROAD SPECTRUM SPF 30 [Suspect]
     Active Substance: AVOBENZONE\HOMOSALATE\OCTISALATE\OCTOCRYLENE\OXYBENZONE
     Indication: DRY SKIN PROPHYLAXIS
     Route: 061
     Dates: start: 20190303, end: 20190306

REACTIONS (3)
  - Dry skin [None]
  - Pruritus [None]
  - Rash erythematous [None]
